FAERS Safety Report 8954909 (Version 2)
Quarter: 2012Q4

REPORT INFORMATION
  Report Type: 
  Country: JP (occurrence: JP)
  Receive Date: 20121210
  Receipt Date: 20121225
  Transmission Date: 20130627
  Serious: No
  Sender: FDA-Public Use
  Company Number: JP-JNJFOC-20121200586

PATIENT
  Age: 50 Year
  Sex: Female

DRUGS (1)
  1. DUROTEP MT [Suspect]
     Indication: PRODUCT USED FOR UNKNOWN INDICATION
     Route: 062

REACTIONS (3)
  - Drug administered at inappropriate site [Unknown]
  - Application site erythema [Recovered/Resolved]
  - Wrong technique in drug usage process [Recovered/Resolved]
